FAERS Safety Report 10229095 (Version 1)
Quarter: 2014Q2

REPORT INFORMATION
  Report Type: Spontaneous
  Country: GB (occurrence: GB)
  Receive Date: 20140610
  Receipt Date: 20140610
  Transmission Date: 20141212
  Serious: Yes (Death)
  Sender: FDA-Public Use
  Company Number: PHHY2014GB068100

PATIENT
  Age: 51 Year
  Sex: Male
  Weight: 50.1 kg

DRUGS (2)
  1. CARVEDILOL [Suspect]
     Indication: PORTAL HYPERTENSION
     Dosage: 6.25 MG, QD
     Route: 048
     Dates: start: 20140324, end: 20140419
  2. OMEPRAZOLE [Suspect]
     Indication: GASTRITIS ALCOHOLIC
     Dosage: 40 MG, BID
     Route: 048
     Dates: start: 20140324, end: 20140419

REACTIONS (2)
  - Toxic epidermal necrolysis [Fatal]
  - Skin lesion [Fatal]
